FAERS Safety Report 4291457-8 (Version None)
Quarter: 2004Q1

REPORT INFORMATION
  Report Type: 
  Country: None (occurrence: None)
  Receive Date: 20040210
  Receipt Date: 20040210
  Transmission Date: 20041129
  Serious: Yes (Other)
  Sender: FDA-Public Use
  Company Number: None

PATIENT
  Sex: Female
  Weight: 81.6475 kg

DRUGS (4)
  1. ESKALTH CR , 450 MG [Suspect]
     Indication: SCHIZOAFFECTIVE DISORDER
     Dosage: TWO PO QHS
     Route: 048
     Dates: start: 20021121
  2. HALDOL [Concomitant]
  3. COGENTIN [Concomitant]
  4. VIT E [Concomitant]

REACTIONS (7)
  - CONFUSIONAL STATE [None]
  - DIARRHOEA [None]
  - DRUG TOXICITY [None]
  - GAIT DISTURBANCE [None]
  - NAUSEA [None]
  - TREMOR [None]
  - VOMITING [None]
